FAERS Safety Report 7012570-8 (Version None)
Quarter: 2010Q3

REPORT INFORMATION
  Report Type: 
  Country: None (occurrence: None)
  Receive Date: 20100924
  Receipt Date: 20100920
  Transmission Date: 20110219
  Serious: Yes (Death, Hospitalization)
  Sender: FDA-Public Use
  Company Number: PHHY2010US50749

PATIENT
  Sex: Female

DRUGS (1)
  1. TASIGNA [Suspect]
     Indication: CHRONIC MYELOID LEUKAEMIA
     Dosage: 400 MG, BID
     Route: 048
     Dates: start: 20080101

REACTIONS (4)
  - CARDIAC FAILURE CONGESTIVE [None]
  - DEATH [None]
  - PLEURAL EFFUSION [None]
  - THORACIC CAVITY DRAINAGE [None]
